FAERS Safety Report 9260267 (Version 4)
Quarter: 2016Q3

REPORT INFORMATION
  Report Type: Spontaneous
  Country: US (occurrence: US)
  Receive Date: 20130429
  Receipt Date: 20160718
  Transmission Date: 20161109
  Serious: Yes (Other)
  Sender: FDA-Public Use
  Company Number: US-RANBAXY-2013US-68248

PATIENT
  Age: 46 Year
  Sex: Female

DRUGS (2)
  1. CEFAZOLIN [Suspect]
     Active Substance: CEFAZOLIN
     Indication: ANTIBIOTIC PROPHYLAXIS
     Dosage: UNK
     Route: 042
  2. CEFALEXIN [Suspect]
     Active Substance: CEPHALEXIN
     Indication: ANTIBIOTIC PROPHYLAXIS
     Dosage: 500 MG, QID
     Route: 042

REACTIONS (4)
  - Folliculitis [Recovering/Resolving]
  - Acne [Recovering/Resolving]
  - Serratia infection [Recovering/Resolving]
  - Drug resistance [Unknown]

NARRATIVE: CASE EVENT DATE: 2011
